FAERS Safety Report 9507849 (Version 1)
Quarter: 2013Q1

REPORT INFORMATION
  Report Type: Spontaneous
  Country: US (occurrence: None)
  Receive Date: 20130305
  Receipt Date: 20130305
  Transmission Date: 20140127
  Serious: Yes (Other)
  Sender: FDA-Public Use
  Company Number: 163-21880-12050820

PATIENT
  Age: 54 Year
  Sex: Female

DRUGS (7)
  1. REVLIMID [Suspect]
     Indication: PLASMA CELL MYELOMA
     Route: 048
     Dates: start: 201110
  2. CELEBREX (CELECOXIB) (UNKNOWN) [Concomitant]
  3. ZANTAC (RANITIDINE HYDROCHLORIDE) (UNKNOWN) [Concomitant]
  4. LISINOPRIL (LISINOPRIL) (UNKNOWN) [Concomitant]
  5. SYNTHROID (LEVOTHYROXINE SODIUM) (UNKNOWN) [Concomitant]
  6. VANCOMYCIN (VANCOMYCIN) (UNKNOWN) [Concomitant]
  7. POTASSIUM (POTASSIUM) (UNKNOWN) [Concomitant]

REACTIONS (1)
  - Clostridium difficile infection [None]
